FAERS Safety Report 5323218-2 (Version None)
Quarter: 2007Q2

REPORT INFORMATION
  Report Type: 
  Country: None (occurrence: None)
  Receive Date: 20070220
  Receipt Date: 20070112
  Transmission Date: 20071010
  Serious: No
  Sender: FDA-Public Use
  Company Number: WAES 0701USA01931

PATIENT
  Age: 51 Year
  Sex: Female

DRUGS (4)
  1. JANUVIA [Suspect]
     Indication: DIABETES MELLITUS
     Dosage: 100 MG/DAILY/PO
     Route: 048
     Dates: start: 20060101
  2. LANTUS [Concomitant]
  3. [THERAPY UNSPECIFIED] [Concomitant]
  4. DIGOXIN [Concomitant]

REACTIONS (3)
  - CELLULITIS [None]
  - HYPOGLYCAEMIA [None]
  - INFECTION [None]
